FAERS Safety Report 17098699 (Version 3)
Quarter: 2020Q1

REPORT INFORMATION
  Report Type: Spontaneous
  Country: US (occurrence: US)
  Receive Date: 20191202
  Receipt Date: 20200115
  Transmission Date: 20200409
  Serious: No
  Sender: FDA-Public Use
  Company Number: US-PFIZER INC-2019514480

PATIENT
  Age: 71 Year
  Sex: Female
  Weight: 79.37 kg

DRUGS (2)
  1. MYSOLINE [Concomitant]
     Active Substance: PRIMIDONE
     Dosage: 250 MG, 3X/DAY
  2. DILANTIN [Suspect]
     Active Substance: PHENYTOIN
     Indication: SEIZURE
     Dosage: UNK, 1X/DAY

REACTIONS (2)
  - Malaise [Recovered/Resolved]
  - Stress [Recovered/Resolved]
